FAERS Safety Report 8277116-5 (Version None)
Quarter: 2012Q2

REPORT INFORMATION
  Report Type: 
  Country: None (occurrence: None)
  Receive Date: 20120412
  Receipt Date: 20120409
  Transmission Date: 20120825
  Serious: Yes (Other)
  Sender: FDA-Public Use
  Company Number: US-TEVA-282737USA

PATIENT
  Age: 63 Year
  Sex: Female

DRUGS (1)
  1. COPAXONE [Suspect]
     Indication: MULTIPLE SCLEROSIS
     Dosage: 20 MILLIGRAM;
     Route: 058
     Dates: end: 20110417

REACTIONS (10)
  - LIMB INJURY [None]
  - FEELING HOT [None]
  - CHILLS [None]
  - LOSS OF CONSCIOUSNESS [None]
  - THIRST [None]
  - RESPIRATORY ARREST [None]
  - AGGRESSION [None]
  - CONFUSIONAL STATE [None]
  - NASOPHARYNGITIS [None]
  - HYPERSENSITIVITY [None]
